FAERS Safety Report 25090528 (Version 3)
Quarter: 2025Q2

REPORT INFORMATION
  Report Type: Spontaneous
  Country: US (occurrence: US)
  Receive Date: 20250318
  Receipt Date: 20250429
  Transmission Date: 20250716
  Serious: No
  Sender: ABBVIE
  Company Number: US-ABBVIE-6180026

PATIENT
  Sex: Female

DRUGS (1)
  1. PRED MILD [Suspect]
     Active Substance: PREDNISOLONE ACETATE
     Indication: Product used for unknown indication
     Route: 047

REACTIONS (7)
  - Cataract [Unknown]
  - Glaucoma [Unknown]
  - Contraindicated product administered [Unknown]
  - Fatigue [Unknown]
  - Malaise [Unknown]
  - Product packaging difficult to open [Unknown]
  - Product container issue [Unknown]
